APPROVED DRUG PRODUCT: NAPROXEN SODIUM
Active Ingredient: NAPROXEN SODIUM
Strength: 220MG
Dosage Form/Route: TABLET;ORAL
Application: A212033 | Product #001
Applicant: YICHANG HUMANWELL PHARMACEUTICAL CO LTD
Approved: Aug 30, 2019 | RLD: No | RS: No | Type: OTC